FAERS Safety Report 9005238 (Version 4)
Quarter: 2013Q2

REPORT INFORMATION
  Report Type: Report from Study
  Country: JP (occurrence: JP)
  Receive Date: 20130108
  Receipt Date: 20130412
  Transmission Date: 20140414
  Serious: Yes (Hospitalization)
  Sender: FDA-Public Use
  Company Number: JP-NOVOPROD-368115

PATIENT
  Age: 74 Year
  Sex: Female
  Weight: 62 kg

DRUGS (19)
  1. VICTOZA HIKACHU INJECTION [Suspect]
     Indication: TYPE 2 DIABETES MELLITUS
     Dosage: UNKNOWN
     Route: 058
     Dates: start: 20120424
  2. VICTOZA HIKACHU INJECTION [Suspect]
     Dosage: UNKNOWN
     Route: 058
     Dates: start: 20120501
  3. VICTOZA HIKACHU INJECTION [Suspect]
     Dosage: UNKNOWN
     Route: 058
     Dates: start: 20120508, end: 20121029
  4. MICARDIS [Concomitant]
     Dosage: UNK
     Dates: start: 201102, end: 20121112
  5. MICARDIS [Concomitant]
     Dosage: 20 MG, QD
     Dates: start: 20121201
  6. CATLEP [Concomitant]
     Route: 065
     Dates: start: 20120326, end: 20120409
  7. LOXONIN [Concomitant]
     Dates: start: 20120410, end: 20121112
  8. DEPAS [Concomitant]
     Indication: INSOMNIA
     Dosage: UNK
     Route: 048
     Dates: start: 20120519, end: 20121112
  9. XALATAN [Concomitant]
     Dosage: UNK
     Dates: start: 201102, end: 20121112
  10. HYALEIN [Concomitant]
     Dates: start: 20120608, end: 20121112
  11. SPEEL M [Concomitant]
     Dates: start: 20120508, end: 20120514
  12. LAMISIL                            /00992602/ [Concomitant]
     Dates: start: 20120117, end: 20121112
  13. TELMISARTAN [Concomitant]
     Indication: HYPERTENSION
     Dosage: UNK
     Dates: end: 20121112
  14. ZOLPIDEM TARTRATE [Concomitant]
     Indication: INSOMNIA
     Dosage: UNK
     Dates: end: 20121112
  15. ETIZOLAM [Concomitant]
     Indication: INSOMNIA
     Dosage: UNK
     Dates: start: 20120519, end: 20121112
  16. MOHRUS [Concomitant]
     Dosage: UNK
     Dates: start: 20120617, end: 20120820
  17. MYSLEE [Concomitant]
     Dosage: UNK
     Dates: start: 201004, end: 20121112
  18. MUCODYNE [Concomitant]
     Indication: NASOPHARYNGITIS
     Dosage: UNK
     Dates: start: 20120725
  19. MUCODYNE [Concomitant]
     Dosage: 250 MG, QD
     Dates: start: 20130105

REACTIONS (1)
  - Eosinophilia [Recovering/Resolving]
